FAERS Safety Report 14778195 (Version 1)
Quarter: 2018Q2

REPORT INFORMATION
  Report Type: Spontaneous
  Country: DE (occurrence: DE)
  Receive Date: 20180419
  Receipt Date: 20180419
  Transmission Date: 20180711
  Serious: Yes (Hospitalization)
  Sender: FDA-Public Use
  Company Number: PHHY2017DE151635

PATIENT
  Sex: Female
  Weight: 98 kg

DRUGS (18)
  1. OMEP [Concomitant]
     Active Substance: OMEPRAZOLE
     Indication: PRODUCT USED FOR UNKNOWN INDICATION
     Dosage: 20 MG, QD
     Route: 048
     Dates: start: 201511
  2. ELIQUIS [Concomitant]
     Active Substance: APIXABAN
     Indication: PRODUCT USED FOR UNKNOWN INDICATION
     Dosage: 5 MG, (2-0-1)
     Route: 065
  3. COSENTYX [Suspect]
     Active Substance: SECUKINUMAB
     Dosage: 150 MG, PER APPLICATION
     Route: 065
     Dates: start: 20160606
  4. METFORMIN [Concomitant]
     Active Substance: METFORMIN HYDROCHLORIDE
     Indication: DIABETES MELLITUS
     Dosage: 500 MG, BID
     Route: 048
     Dates: start: 201106
  5. AMITRIPTYLIN NEURAXPHARM [Concomitant]
     Active Substance: AMITRIPTYLINE
     Indication: DEPRESSION
     Dosage: UNK, QD
     Route: 048
     Dates: start: 201511
  6. COSENTYX [Suspect]
     Active Substance: SECUKINUMAB
     Dosage: 300 MG, PER APPLICATION
     Route: 065
     Dates: start: 20160725
  7. COSENTYX [Suspect]
     Active Substance: SECUKINUMAB
     Dosage: 300 MG, PER APPLICATION
     Route: 065
     Dates: start: 20160919
  8. LAMOTRIGIN [Concomitant]
     Active Substance: LAMOTRIGINE
     Indication: PRODUCT USED FOR UNKNOWN INDICATION
     Dosage: 50 MG, QD
     Route: 065
  9. COSENTYX [Suspect]
     Active Substance: SECUKINUMAB
     Indication: PSORIASIS
     Dosage: 300 MG, PER APPLICATION
     Route: 065
     Dates: start: 20160530, end: 20160530
  10. COSENTYX [Suspect]
     Active Substance: SECUKINUMAB
     Dosage: 150 MG, PER APPLICATION
     Route: 065
     Dates: start: 20160620
  11. COSENTYX [Suspect]
     Active Substance: SECUKINUMAB
     Dosage: 300 MG, PER APPLICATION
     Route: 065
     Dates: start: 20160627
  12. MOVICOL [Concomitant]
     Active Substance: POLYETHYLENE GLYCOL 3350\POTASSIUM CHLORIDE\SODIUM BICARBONATE\SODIUM CHLORIDE
     Indication: CONSTIPATION
     Dosage: 2 DF, QD
     Route: 048
     Dates: start: 201511
  13. COSENTYX [Suspect]
     Active Substance: SECUKINUMAB
     Dosage: 150 MG, PER APPLICATION
     Route: 065
     Dates: start: 20160613
  14. NOVALGIN (METAMIZOLE SODIUM) [Concomitant]
     Active Substance: METAMIZOLE SODIUM
     Indication: PAIN
     Dosage: 5 DF,  (2-1-2)
     Route: 048
     Dates: start: 201511
  15. COSENTYX [Suspect]
     Active Substance: SECUKINUMAB
     Dosage: 300 MG, PER APPLICATION
     Route: 065
     Dates: start: 20160822
  16. LORZAAR PROTECT [Concomitant]
     Indication: HYPERTENSION
     Dosage: 100 MG, QD
     Route: 048
     Dates: start: 200606
  17. GABAPENTIN. [Concomitant]
     Active Substance: GABAPENTIN
     Indication: EPILEPSY
     Dosage: UNK UNK, BID
     Route: 048
     Dates: start: 201511
  18. LOSARTAN-KALIUM AXCOUNT [Concomitant]
     Indication: PRODUCT USED FOR UNKNOWN INDICATION
     Dosage: 100 MG, QD
     Route: 065

REACTIONS (1)
  - Pelvic venous thrombosis [Recovered/Resolved]

NARRATIVE: CASE EVENT DATE: 20170914
